FAERS Safety Report 18594192 (Version 2)
Quarter: 2021Q1

REPORT INFORMATION
  Report Type: Spontaneous
  Country: US (occurrence: US)
  Receive Date: 20201209
  Receipt Date: 20210130
  Transmission Date: 20210419
  Serious: Yes (Other)
  Sender: FDA-Public Use
  Company Number: US-TEVA-2020-US-1857148

PATIENT
  Age: 77 Year
  Sex: Female

DRUGS (4)
  1. OXYCONTIN [Suspect]
     Active Substance: OXYCODONE HYDROCHLORIDE
     Route: 065
  2. BENAZEPRIL [Concomitant]
     Active Substance: BENAZEPRIL HYDROCHLORIDE
     Route: 065
  3. OXYCODONE [Suspect]
     Active Substance: OXYCODONE
     Route: 065
  4. TRAMADOL. [Suspect]
     Active Substance: TRAMADOL
     Indication: PAIN
     Route: 065
     Dates: start: 201602, end: 201604

REACTIONS (5)
  - Therapeutic product effect decreased [Not Recovered/Not Resolved]
  - Amnesia [Not Recovered/Not Resolved]
  - Drug dependence [Unknown]
  - Paraesthesia [Not Recovered/Not Resolved]
  - Joint stiffness [Not Recovered/Not Resolved]
